FAERS Safety Report 9115834 (Version 3)
Quarter: 2013Q2

REPORT INFORMATION
  Report Type: Spontaneous
  Country: US (occurrence: US)
  Receive Date: 20130224
  Receipt Date: 20130430
  Transmission Date: 20140414
  Serious: Yes (Other)
  Sender: FDA-Public Use
  Company Number: US-BRISTOL-MYERS SQUIBB COMPANY-17091141

PATIENT
  Age: 64 Year
  Sex: Female
  Weight: 81.63 kg

DRUGS (11)
  1. ABATACEPT SUBQ INJECTION 125MG/ML [Suspect]
     Indication: RHEUMATOID ARTHRITIS
     Dosage: LAST INJ ON 1NOV12,PRESCRIPTION #: 2226378
     Route: 058
     Dates: start: 20120515
  2. ATENOLOL [Concomitant]
  3. CALCIUM [Concomitant]
  4. GLUCOSAMINE [Concomitant]
  5. LISINOPRIL [Concomitant]
  6. OXYCODONE [Concomitant]
  7. REMERON [Concomitant]
  8. SIMVASTATIN [Concomitant]
  9. SULINDAC [Concomitant]
  10. TRAMADOL [Concomitant]
  11. TYLENOL [Concomitant]

REACTIONS (5)
  - Rotator cuff syndrome [Unknown]
  - Osteoarthritis [Unknown]
  - Muscle disorder [Unknown]
  - Tendon disorder [Unknown]
  - Product quality issue [Unknown]
